FAERS Safety Report 9882266 (Version 1)
Quarter: 2014Q1

REPORT INFORMATION
  Report Type: Spontaneous
  Country: US (occurrence: US)
  Receive Date: 20140207
  Receipt Date: 20140207
  Transmission Date: 20141002
  Serious: Yes (Hospitalization)
  Sender: FDA-Public Use
  Company Number: US-BAYER-2014-019611

PATIENT
  Age: 29 Year
  Sex: Female

DRUGS (12)
  1. YAZ [Suspect]
  2. AMOXICILLIN [Concomitant]
     Dosage: 875 MG, UNK
     Route: 048
  3. AZITHROMYCIN [Concomitant]
     Dosage: 250 MG, UNK
     Route: 048
  4. VENTOLIN [Concomitant]
  5. CELEXA [Concomitant]
     Dosage: 20 MG, UNK
     Route: 048
  6. ALBUTEROL [Concomitant]
  7. DILAUDID [Concomitant]
     Indication: PAIN MANAGEMENT
  8. CITALOPRAM [Concomitant]
  9. MILK OF MAGNESIA [Concomitant]
  10. VICODIN [Concomitant]
  11. CHANTIX [Concomitant]
  12. PERCOCET [Concomitant]

REACTIONS (1)
  - Pulmonary embolism [None]
